FAERS Safety Report 13349550 (Version 1)
Quarter: 2017Q1

REPORT INFORMATION
  Report Type: Spontaneous
  Country: US (occurrence: US)
  Receive Date: 20170317
  Receipt Date: 20170317
  Transmission Date: 20170428
  Serious: Yes (Hospitalization, Other)
  Sender: FDA-Public Use
  Company Number: None

PATIENT
  Age: 44 Year
  Sex: Male
  Weight: 114.2 kg

DRUGS (1)
  1. ALBUMIN [Suspect]
     Active Substance: ALBUMIN HUMAN
     Indication: DEHYDRATION
     Route: 042

REACTIONS (5)
  - Pancreatitis acute [None]
  - Acute kidney injury [None]
  - Rhabdomyolysis [None]
  - Cholelithiasis [None]
  - Diabetic ketoacidosis [None]

NARRATIVE: CASE EVENT DATE: 20170313
